FAERS Safety Report 14532495 (Version 4)
Quarter: 2018Q2

REPORT INFORMATION
  Report Type: Spontaneous
  Country: JP (occurrence: JP)
  Receive Date: 20180214
  Receipt Date: 20180614
  Transmission Date: 20180711
  Serious: Yes (Hospitalization, Other)
  Sender: FDA-Public Use
  Company Number: JP-ALLERGAN-1806872US

PATIENT
  Age: 77 Year
  Sex: Male

DRUGS (8)
  1. BOTOX [Suspect]
     Active Substance: ONABOTULINUMTOXINA
     Dosage: UNK
     Route: 030
     Dates: start: 20180215, end: 20180215
  2. BOTOX [Suspect]
     Active Substance: ONABOTULINUMTOXINA
     Dosage: 50 UNITS, SINGLE
     Route: 030
     Dates: start: 20180131, end: 20180131
  3. BOTOX [Suspect]
     Active Substance: ONABOTULINUMTOXINA
     Dosage: 50 UNITS, SINGLE
     Route: 030
     Dates: start: 20180131, end: 20180131
  4. BOTOX [Suspect]
     Active Substance: ONABOTULINUMTOXINA
     Dosage: 50 UNITS, SINGLE
     Route: 030
     Dates: start: 20180131, end: 20180131
  5. BOTOX [Suspect]
     Active Substance: ONABOTULINUMTOXINA
     Dosage: 50 UNITS, SINGLE
     Route: 030
     Dates: start: 20180131, end: 20180131
  6. BOTOX [Suspect]
     Active Substance: ONABOTULINUMTOXINA
     Dosage: 50 UNITS, SINGLE
     Route: 030
     Dates: start: 20180131, end: 20180131
  7. BOTOX [Suspect]
     Active Substance: ONABOTULINUMTOXINA
     Indication: MUSCLE SPASMS
     Dosage: UNK
     Route: 030
  8. BOTOX [Suspect]
     Active Substance: ONABOTULINUMTOXINA
     Dosage: 50 UNITS, SINGLE
     Route: 030
     Dates: start: 20180131, end: 20180131

REACTIONS (21)
  - Dysstasia [Not Recovered/Not Resolved]
  - Spinal osteoarthritis [Unknown]
  - Consciousness fluctuating [Recovered/Resolved]
  - Muscular weakness [Not Recovered/Not Resolved]
  - Restlessness [Unknown]
  - Muscle twitching [Unknown]
  - Hypoaesthesia [Recovering/Resolving]
  - Asthenia [Unknown]
  - Somnolence [Recovered/Resolved]
  - Sudden onset of sleep [Recovered/Resolved]
  - Product administered at inappropriate site [Unknown]
  - Delirium [Recovering/Resolving]
  - Muscle spasms [Recovering/Resolving]
  - Abnormal behaviour [Recovered/Resolved]
  - Paraesthesia [Recovering/Resolving]
  - Fine motor skill dysfunction [Unknown]
  - Myelopathy [Unknown]
  - Grip strength decreased [Unknown]
  - Motor dysfunction [Unknown]
  - Insomnia [Recovered/Resolved]
  - Pain [Unknown]

NARRATIVE: CASE EVENT DATE: 201708
